FAERS Safety Report 10275260 (Version 1)
Quarter: 2014Q3

REPORT INFORMATION
  Report Type: Spontaneous
  Country: US (occurrence: US)
  Receive Date: 20140703
  Receipt Date: 20140703
  Transmission Date: 20150326
  Serious: Yes (Other)
  Sender: FDA-Public Use
  Company Number: US-BRISTOL-MYERS SQUIBB COMPANY-21079447

PATIENT
  Sex: Male

DRUGS (2)
  1. COUMADIN [Suspect]
     Active Substance: WARFARIN SODIUM
  2. ADVIL [Concomitant]
     Active Substance: IBUPROFEN
     Dosage: PILLS

REACTIONS (2)
  - Joint hyperextension [Unknown]
  - Joint swelling [Unknown]
